FAERS Safety Report 9290696 (Version 4)
Quarter: 2013Q3

REPORT INFORMATION
  Report Type: Report from Study
  Country: US (occurrence: US)
  Receive Date: 20130515
  Receipt Date: 20130927
  Transmission Date: 20140515
  Serious: Yes (Death, Life-Threatening, Hospitalization)
  Sender: FDA-Public Use
  Company Number: US-ROCHE-1219843

PATIENT
  Age: 65 Year
  Sex: Female
  Weight: 43.7 kg

DRUGS (7)
  1. DCDT2980S (ANTI-CD22-VC-MMAE) [Suspect]
     Indication: B-CELL LYMPHOMA
     Dosage: DOSE LAST TAKEN ON 18/APR/2013: 116 MG
     Route: 042
     Dates: start: 20130418
  2. RITUXIMAB [Suspect]
     Indication: B-CELL LYMPHOMA
     Dosage: DOSE LAST TAKEN ON 17/APR/2013: 532MG
     Route: 042
     Dates: start: 20130417
  3. COUMADIN [Concomitant]
     Indication: DEEP VEIN THROMBOSIS
     Route: 048
     Dates: start: 2010
  4. COUMADIN [Concomitant]
     Indication: INTERNATIONAL NORMALISED RATIO INCREASED
     Route: 048
     Dates: start: 20130426, end: 20130507
  5. PRILOSEC [Concomitant]
     Indication: GASTROOESOPHAGEAL REFLUX DISEASE
     Route: 048
     Dates: start: 2007
  6. FAMVIR [Concomitant]
     Indication: HERPES ZOSTER
     Route: 048
  7. TYLENOL [Concomitant]
     Indication: PAIN
     Route: 048
     Dates: start: 20130408

REACTIONS (2)
  - Urosepsis [Fatal]
  - Renal failure chronic [Not Recovered/Not Resolved]
